FAERS Safety Report 16454256 (Version 1)
Quarter: 2019Q2

REPORT INFORMATION
  Report Type: Spontaneous
  Country: GB (occurrence: GB)
  Receive Date: 20190619
  Receipt Date: 20190619
  Transmission Date: 20190711
  Serious: Yes (Other)
  Sender: FDA-Public Use
  Company Number: GB-MYLANLABS-2019M1057427

PATIENT
  Age: 66 Year
  Sex: Female

DRUGS (1)
  1. ENALAPRIL/HYDROCHLOROTHIAZIDE [Suspect]
     Active Substance: ENALAPRIL MALEATE\HYDROCHLOROTHIAZIDE
     Indication: BLOOD KETONE BODY PRESENT
     Dosage: 20MG/12.5MG
     Route: 048
     Dates: end: 20181218

REACTIONS (1)
  - Skin lesion [Unknown]
